FAERS Safety Report 4386532-3 (Version None)
Quarter: 2004Q2

REPORT INFORMATION
  Report Type: 
  Country: None (occurrence: None)
  Receive Date: 20040629
  Receipt Date: 20040622
  Transmission Date: 20050107
  Serious: Yes (Death, Other)
  Sender: FDA-Public Use
  Company Number: 200414784US

PATIENT
  Age: 36 Year
  Sex: Female

DRUGS (1)
  1. LASIX [Suspect]
     Indication: OEDEMA PERIPHERAL
     Dosage: DOSE: 20 (X 1 DOSE)

REACTIONS (4)
  - DRUG EXPOSURE DURING PREGNANCY [None]
  - INTRA-UTERINE DEATH [None]
  - PREMATURE BABY [None]
  - PREMATURE SEPARATION OF PLACENTA [None]
